FAERS Safety Report 11058630 (Version 3)
Quarter: 2015Q4

REPORT INFORMATION
  Report Type: Spontaneous
  Country: CA (occurrence: CA)
  Receive Date: 20150423
  Receipt Date: 20151118
  Transmission Date: 20160304
  Serious: Yes (Other)
  Sender: FDA-Public Use
  Company Number: CA-ROCHE-1567913

PATIENT
  Age: 38 Year
  Sex: Female
  Weight: 79 kg

DRUGS (5)
  1. NASONEX [Concomitant]
     Active Substance: MOMETASONE FUROATE
  2. XOLAIR [Suspect]
     Active Substance: OMALIZUMAB
     Indication: ASTHMA
     Dosage: FOR 4 WEEKS
     Route: 058
     Dates: start: 20140125
  3. SYMBICORT [Concomitant]
     Active Substance: BUDESONIDE\FORMOTEROL FUMARATE DIHYDRATE
  4. PULMICORT TURBUHALER [Concomitant]
     Active Substance: BUDESONIDE
  5. VANTELIN [Concomitant]
     Active Substance: INDOMETHACIN

REACTIONS (5)
  - Asthma [Unknown]
  - Bacterial infection [Unknown]
  - Pneumonia [Unknown]
  - Maternal exposure during pregnancy [Unknown]
  - Lower respiratory tract infection [Recovered/Resolved]

NARRATIVE: CASE EVENT DATE: 201411
